FAERS Safety Report 8904637 (Version 4)
Quarter: 2013Q3

REPORT INFORMATION
  Report Type: Spontaneous
  Country: CN (occurrence: CN)
  Receive Date: 20121113
  Receipt Date: 20130906
  Transmission Date: 20140515
  Serious: Yes (Hospitalization)
  Sender: FDA-Public Use
  Company Number: CN-ABBOTT-12P-035-1007340-00

PATIENT
  Age: 41 Year
  Sex: Male

DRUGS (2)
  1. VALPROIC ACID [Suspect]
     Indication: CONVULSION PROPHYLAXIS
     Route: 048
  2. VALPROIC ACID [Suspect]
     Route: 048

REACTIONS (8)
  - Plasminogen increased [Recovered/Resolved]
  - Hypofibrinogenaemia [Recovered/Resolved]
  - Fibrin D dimer increased [Recovered/Resolved]
  - Haemorrhage intracranial [Recovered/Resolved]
  - Headache [Recovered/Resolved]
  - Activated partial thromboplastin time prolonged [Recovered/Resolved]
  - Prothrombin time prolonged [Recovered/Resolved]
  - Thrombin time prolonged [Recovered/Resolved]
